FAERS Safety Report 14517574 (Version 2)
Quarter: 2020Q1

REPORT INFORMATION
  Report Type: Spontaneous
  Country: US (occurrence: US)
  Receive Date: 20180212
  Receipt Date: 20200213
  Transmission Date: 20200409
  Serious: No
  Sender: FDA-Public Use
  Company Number: US-JNJFOC-20180202184

PATIENT
  Sex: Male

DRUGS (10)
  1. RISPERIDONE. [Suspect]
     Active Substance: RISPERIDONE
     Indication: MAJOR DEPRESSION
  2. INVEGA [Suspect]
     Active Substance: PALIPERIDONE
     Indication: MAJOR DEPRESSION
  3. INVEGA SUSTENNA [Suspect]
     Active Substance: PALIPERIDONE PALMITATE
     Indication: DISTURBANCE IN SOCIAL BEHAVIOUR
  4. INVEGA [Suspect]
     Active Substance: PALIPERIDONE
     Indication: DISTURBANCE IN SOCIAL BEHAVIOUR
  5. RISPERIDONE. [Suspect]
     Active Substance: RISPERIDONE
     Indication: PSYCHOTIC DISORDER
     Route: 065
     Dates: start: 20120802, end: 20131121
  6. INVEGA SUSTENNA [Suspect]
     Active Substance: PALIPERIDONE PALMITATE
     Indication: PSYCHOTIC DISORDER
     Route: 030
     Dates: start: 20130521, end: 20130614
  7. INVEGA [Suspect]
     Active Substance: PALIPERIDONE
     Indication: PSYCHOTIC DISORDER
     Route: 048
     Dates: start: 20130612, end: 20131204
  8. RISPERDAL [Suspect]
     Active Substance: RISPERIDONE
     Indication: PRODUCT USED FOR UNKNOWN INDICATION
     Route: 048
     Dates: start: 20120807, end: 20131204
  9. RISPERIDONE. [Suspect]
     Active Substance: RISPERIDONE
     Indication: DISTURBANCE IN SOCIAL BEHAVIOUR
  10. INVEGA SUSTENNA [Suspect]
     Active Substance: PALIPERIDONE PALMITATE
     Indication: MAJOR DEPRESSION

REACTIONS (2)
  - Gynaecomastia [Unknown]
  - Emotional distress [Unknown]
